FAERS Safety Report 8152654-4 (Version None)
Quarter: 2012Q1

REPORT INFORMATION
  Report Type: 
  Country: None (occurrence: None)
  Receive Date: 20120103
  Receipt Date: 20111025
  Transmission Date: 20120608
  Serious: No
  Sender: FDA-Public Use
  Company Number: AE-2011-002071

PATIENT
  Age: 55 Year
  Sex: Male
  Weight: 107.9561 kg

DRUGS (8)
  1. RIBAVIRIN [Concomitant]
  2. GLUCOPHAGE [Concomitant]
  3. INCIVEK [Suspect]
     Dosage: 2250 MG (750 MG, 1 IN 8 HR), ORAL
     Route: 048
     Dates: start: 20110923
  4. METOPROLOL TARTRATE [Concomitant]
  5. GEMFIBROZIL [Concomitant]
  6. GLUCOTROL [Concomitant]
  7. JANUMET (ANTI-DIABETICS) [Concomitant]
  8. PEGINTERFERON (PEGINTERFERON ALFA-2A) [Concomitant]

REACTIONS (4)
  - VOMITING [None]
  - ANORECTAL DISCOMFORT [None]
  - NAUSEA [None]
  - PRURITUS [None]
